FAERS Safety Report 6918876-2 (Version None)
Quarter: 2010Q3

REPORT INFORMATION
  Report Type: 
  Country: None (occurrence: None)
  Receive Date: 20100811
  Receipt Date: 20100712
  Transmission Date: 20110219
  Serious: No
  Sender: FDA-Public Use
  Company Number: US-TYCO HEALTHCARE/MALLINCKRODT-T201001671

PATIENT
  Sex: Female

DRUGS (1)
  1. PENNSAID [Suspect]
     Dosage: UNK

REACTIONS (1)
  - THERMAL BURN [None]
